FAERS Safety Report 4454143-7 (Version None)
Quarter: 2004Q3

REPORT INFORMATION
  Report Type: 
  Country: None (occurrence: None)
  Receive Date: 20040826
  Receipt Date: 20040714
  Transmission Date: 20050211
  Serious: No
  Sender: FDA-Public Use
  Company Number: WAES 0407USA01265

PATIENT
  Age: 65 Year
  Sex: Female

DRUGS (2)
  1. ZETIA [Suspect]
     Dosage: 10 MG/DAILY/PO
     Route: 048
  2. ZETIA [Suspect]
     Dosage: PO
     Route: 048

REACTIONS (4)
  - DYSPNOEA [None]
  - MEDICATION ERROR [None]
  - SENSATION OF HEAVINESS [None]
  - URTICARIA GENERALISED [None]
